FAERS Safety Report 9504727 (Version 1)
Quarter: 2013Q1

REPORT INFORMATION
  Report Type: Spontaneous
  Country: US (occurrence: None)
  Receive Date: 20130225
  Receipt Date: 20130225
  Transmission Date: 20140127
  Serious: Yes (Hospitalization)
  Sender: FDA-Public Use
  Company Number: 2012-523

PATIENT
  Age: 58 Year
  Sex: Male
  Weight: 104.3 kg

DRUGS (5)
  1. PRIALT (ZICONOTIDE) INTRATHECAL INFUSION [Suspect]
     Indication: PAIN
     Dosage: ONCE AN HR
     Route: 037
  2. PRIALT (ZICONOTIDE) INTRATHECAL INFUSION [Suspect]
     Indication: NECK PAIN
     Dosage: ONCE AN HR
     Route: 037
  3. PRIALT (ZICONOTIDE) INTRATHECAL INFUSION [Suspect]
     Indication: INTERVERTEBRAL DISC DEGENERATION
     Dosage: ONCE AN HR
     Route: 037
  4. PRIALT (ZICONOTIDE) INTRATHECAL INFUSION [Suspect]
     Indication: LUMBAR SPINAL STENOSIS
     Dosage: ONCE AN HR
     Route: 037
  5. PRIALT (ZICONOTIDE) INTRATHECAL INFUSION [Suspect]
     Indication: SPINAL COLUMN STENOSIS
     Dosage: ONCE AN HR
     Route: 037

REACTIONS (10)
  - Vision blurred [None]
  - Gait disturbance [None]
  - Fall [None]
  - Nightmare [None]
  - Back pain [None]
  - Memory impairment [None]
  - Nausea [None]
  - Insomnia [None]
  - Headache [None]
  - Pain in extremity [None]
